FAERS Safety Report 13554001 (Version 2)
Quarter: 2017Q3

REPORT INFORMATION
  Report Type: Spontaneous
  Country: US (occurrence: US)
  Receive Date: 20170517
  Receipt Date: 20170706
  Transmission Date: 20171127
  Serious: Yes (Other)
  Sender: FDA-Public Use
  Company Number: US-PURDUE PHARMA-USA-2017-0138858

PATIENT
  Age: 88 Year
  Sex: Male
  Weight: 83.45 kg

DRUGS (4)
  1. BETADINE [Suspect]
     Active Substance: POVIDONE-IODINE
     Indication: PREOPERATIVE CARE
     Dosage: UNK UNK, SINGLE
     Route: 061
     Dates: start: 20170414, end: 20170414
  2. AFLIBERCEPT [Suspect]
     Active Substance: AFLIBERCEPT
     Indication: NEOVASCULAR AGE-RELATED MACULAR DEGENERATION
     Dosage: 0.2 MG, SINGLE
     Route: 065
     Dates: start: 20170414, end: 20170414
  3. BETADINE [Suspect]
     Active Substance: POVIDONE-IODINE
     Dosage: UNK, MONTHLY
     Route: 061
  4. AFLIBERCEPT [Suspect]
     Active Substance: AFLIBERCEPT
     Dosage: 0.2 MG, UNK
     Route: 065
     Dates: start: 20160921

REACTIONS (5)
  - Eye colour change [Unknown]
  - Vision blurred [Recovering/Resolving]
  - Blindness [Recovering/Resolving]
  - Non-infectious endophthalmitis [Recovering/Resolving]
  - Vitritis [Recovering/Resolving]

NARRATIVE: CASE EVENT DATE: 201704
